FAERS Safety Report 6861317-4 (Version None)
Quarter: 2010Q3

REPORT INFORMATION
  Report Type: 
  Country: None (occurrence: None)
  Receive Date: 20100715
  Receipt Date: 20100709
  Transmission Date: 20110219
  Serious: Yes (Other)
  Sender: FDA-Public Use
  Company Number: TOR 2010-0087

PATIENT
  Age: 60 Year
  Sex: Female

DRUGS (3)
  1. FARESTON [Suspect]
     Indication: BREAST CANCER RECURRENT
     Dosage: 120 MG ORAL
     Route: 048
     Dates: start: 20081208, end: 20090105
  2. PACLITAXEL [Suspect]
     Indication: BREAST CANCER RECURRENT
     Dosage: 76.8 MG/DAY INTRAVENOUS
     Route: 042
     Dates: start: 20081208, end: 20090105
  3. HERCEPTIN [Concomitant]

REACTIONS (5)
  - BLOOD ALBUMIN DECREASED [None]
  - BLOOD LACTATE DEHYDROGENASE INCREASED [None]
  - BLOOD POTASSIUM DECREASED [None]
  - BLOOD SODIUM DECREASED [None]
  - WHITE BLOOD CELL COUNT DECREASED [None]
